FAERS Safety Report 19022518 (Version 2)
Quarter: 2021Q2

REPORT INFORMATION
  Report Type: Spontaneous
  Country: US (occurrence: US)
  Receive Date: 20210318
  Receipt Date: 20210407
  Transmission Date: 20210717
  Serious: Yes (Other)
  Sender: FDA-Public Use
  Company Number: US-FARMAPROD-202103-0342

PATIENT
  Sex: Female

DRUGS (4)
  1. DORZOLAMIDE HYDROCHLORIDE. [Concomitant]
     Active Substance: DORZOLAMIDE HYDROCHLORIDE
  2. LUMIGAN [Concomitant]
     Active Substance: BIMATOPROST
  3. OXERVATE [Suspect]
     Active Substance: CENEGERMIN-BKBJ
     Indication: HYPOAESTHESIA EYE
     Route: 047
     Dates: start: 20210224
  4. ZIOPTAN [Concomitant]
     Active Substance: TAFLUPROST
     Dosage: DROPERETTE

REACTIONS (4)
  - Glaucoma [Unknown]
  - Sleep apnoea syndrome [Unknown]
  - Disturbance in attention [Unknown]
  - Insomnia [Unknown]
